FAERS Safety Report 4595138-2 (Version None)
Quarter: 2005Q1

REPORT INFORMATION
  Report Type: 
  Country: None (occurrence: None)
  Receive Date: 20050224
  Receipt Date: 20040928
  Transmission Date: 20050727
  Serious: Yes (Other)
  Sender: FDA-Public Use
  Company Number: GXKR2004US00751

PATIENT
  Age: 6 Year
  Sex: Male

DRUGS (1)
  1. PAROXETINE HCL [Suspect]
     Indication: OBSESSIVE-COMPULSIVE DISORDER
     Dosage: 10 MG,

REACTIONS (5)
  - BRUXISM [None]
  - DYSTONIA [None]
  - GRAND MAL CONVULSION [None]
  - GRIMACING [None]
  - MEDICATION ERROR [None]
